FAERS Safety Report 15482015 (Version 4)
Quarter: 2018Q4

REPORT INFORMATION
  Report Type: Spontaneous
  Country: IT (occurrence: IT)
  Receive Date: 20181010
  Receipt Date: 20181224
  Transmission Date: 20190205
  Serious: Yes (Hospitalization)
  Sender: FDA-Public Use
  Company Number: IT-B.I. PHARMACEUTICALS,INC./RIDGEFIELD-2018-BI-049444

PATIENT
  Age: 68 Year
  Sex: Male
  Weight: 55 kg

DRUGS (2)
  1. VARGATEF [Suspect]
     Active Substance: NINTEDANIB
     Indication: LUNG NEOPLASM
     Route: 048
     Dates: start: 20180622, end: 20180818
  2. DOCETAXEL. [Concomitant]
     Active Substance: DOCETAXEL
     Indication: LUNG NEOPLASM
     Dosage: SOLUTION FOR INJECTION
     Route: 042
     Dates: start: 20180622, end: 20180803

REACTIONS (1)
  - Mediastinitis [Not Recovered/Not Resolved]

NARRATIVE: CASE EVENT DATE: 20180818
